FAERS Safety Report 6925270-7 (Version None)
Quarter: 2010Q3

REPORT INFORMATION
  Report Type: 
  Country: None (occurrence: None)
  Receive Date: 20100810
  Receipt Date: 20100730
  Transmission Date: 20110219
  Serious: Yes (Other)
  Sender: FDA-Public Use
  Company Number: 2010US003075

PATIENT
  Age: 59 Year
  Sex: Female

DRUGS (11)
  1. PROGRAF [Suspect]
     Indication: LUNG TRANSPLANT
     Dosage: 6 MG IN AM AND 6.5 MG IN PM
  2. ARANESP [Concomitant]
  3. CITRACAL (CALCIUM CITRATE) [Concomitant]
  4. DAPSONE [Concomitant]
  5. LOPRESSOR [Concomitant]
  6. SYNTHROID [Concomitant]
  7. LYSINE (LYSINE) [Concomitant]
  8. MAGNESIUM GLUTAMATE (MAGNESIUM GLUTAMATE) [Concomitant]
  9. MVA [Concomitant]
  10. PREDNISONE [Concomitant]
  11. FORTEO [Concomitant]

REACTIONS (5)
  - BRONCHOPULMONARY ASPERGILLOSIS [None]
  - HYPOAESTHESIA [None]
  - PROCEDURAL COMPLICATION [None]
  - THYROID CANCER [None]
  - VOCAL CORD DISORDER [None]
